FAERS Safety Report 9338148 (Version 1)
Quarter: 2013Q2

REPORT INFORMATION
  Report Type: Spontaneous
  Country: US (occurrence: US)
  Receive Date: 20130610
  Receipt Date: 20130610
  Transmission Date: 20140414
  Serious: Yes (Other)
  Sender: FDA-Public Use
  Company Number: US-RB-054869-13

PATIENT
  Age: 88 Year
  Sex: Male

DRUGS (1)
  1. COUGH RELIEF ORANGE [Suspect]
     Indication: PRODUCT USED FOR UNKNOWN INDICATION
     Dosage: 1 TIME
     Route: 048
     Dates: start: 20130506

REACTIONS (2)
  - Deafness [Recovered/Resolved]
  - Ear infection [Recovered/Resolved]
